FAERS Safety Report 9320244 (Version 1)
Quarter: 2013Q2

REPORT INFORMATION
  Report Type: Spontaneous
  Country: CO (occurrence: CO)
  Receive Date: 20130530
  Receipt Date: 20130530
  Transmission Date: 20140414
  Serious: Yes (Other)
  Sender: FDA-Public Use
  Company Number: CO-PFIZER INC-2013162039

PATIENT
  Sex: 0

DRUGS (1)
  1. XYNTHA [Suspect]
     Dosage: UNK

REACTIONS (1)
  - Factor VIII inhibition [Unknown]
